FAERS Safety Report 14233013 (Version 1)
Quarter: 2017Q4

REPORT INFORMATION
  Report Type: Spontaneous
  Country: US (occurrence: None)
  Receive Date: 20171128
  Receipt Date: 20171128
  Transmission Date: 20180321
  Serious: Yes (Hospitalization)
  Sender: FDA-Public Use
  Company Number: None

PATIENT
  Age: 12 Year
  Sex: Female
  Weight: 59.7 kg

DRUGS (10)
  1. DOXORUBICIN HYDROCHLORIDE. [Suspect]
     Active Substance: DOXORUBICIN HYDROCHLORIDE
     Dates: end: 20171019
  2. CYCLOPHOSPHAMIDE. [Suspect]
     Active Substance: CYCLOPHOSPHAMIDE
     Dates: end: 20170526
  3. ONCASPAR [Suspect]
     Active Substance: PEGASPARGASE
     Dates: end: 20171002
  4. DEXAMETHASONE. [Suspect]
     Active Substance: DEXAMETHASONE
     Dates: end: 20171025
  5. VINCRISTINE SULFATE. [Suspect]
     Active Substance: VINCRISTINE SULFATE
     Dates: end: 20171019
  6. DAUNORUBICIN [Suspect]
     Active Substance: DAUNORUBICIN
     Dates: end: 20170329
  7. MERCAPTOPURINE. [Suspect]
     Active Substance: MERCAPTOPURINE
     Dates: end: 20170920
  8. METHOTREXATE. [Suspect]
     Active Substance: METHOTREXATE
     Dates: end: 20170929
  9. LORATADINE. [Concomitant]
     Active Substance: LORATADINE
  10. CYTARABINE. [Suspect]
     Active Substance: CYTARABINE
     Dates: end: 20170605

REACTIONS (17)
  - Suicidal ideation [None]
  - Social avoidant behaviour [None]
  - Sleep disorder [None]
  - Emotional disorder [None]
  - Delirium [None]
  - Mental impairment [None]
  - Hallucination, visual [None]
  - Laboratory test abnormal [None]
  - Hallucination, auditory [None]
  - Confusional state [None]
  - Abnormal behaviour [None]
  - Cognitive disorder [None]
  - Logorrhoea [None]
  - Insomnia [None]
  - Memory impairment [None]
  - Decreased appetite [None]
  - Altered state of consciousness [None]

NARRATIVE: CASE EVENT DATE: 20171102
